FAERS Safety Report 16327669 (Version 2)
Quarter: 2019Q2

REPORT INFORMATION
  Report Type: Spontaneous
  Country: US (occurrence: US)
  Receive Date: 20190517
  Receipt Date: 20190524
  Transmission Date: 20190711
  Serious: Yes (Life-Threatening, Other)
  Sender: FDA-Public Use
  Company Number: PHHY2019US110147

PATIENT
  Age: 66 Year
  Sex: Male

DRUGS (6)
  1. LIDOCAINE. [Suspect]
     Active Substance: LIDOCAINE
     Indication: VENTRICULAR TACHYCARDIA
     Route: 041
  2. ASPIRIN. [Concomitant]
     Active Substance: ASPIRIN
     Indication: EJECTION FRACTION
     Route: 065
  3. AMIODARONE [Suspect]
     Active Substance: AMIODARONE
     Indication: VENTRICULAR TACHYCARDIA
     Route: 041
  4. TICAGRELOR. [Concomitant]
     Active Substance: TICAGRELOR
     Indication: EJECTION FRACTION
     Route: 065
  5. WARFARIN [Concomitant]
     Active Substance: WARFARIN
     Indication: EJECTION FRACTION
     Route: 065
  6. METOPROLOL SUCCINATE. [Concomitant]
     Active Substance: METOPROLOL SUCCINATE
     Indication: EJECTION FRACTION
     Route: 065

REACTIONS (6)
  - Left ventricular dysfunction [Unknown]
  - Ventricular arrhythmia [Unknown]
  - Respiratory failure [Unknown]
  - Product use in unapproved indication [Unknown]
  - Therapy non-responder [Unknown]
  - Cardiogenic shock [Unknown]
